FAERS Safety Report 5284936-8 (Version None)
Quarter: 2007Q2

REPORT INFORMATION
  Report Type: 
  Country: None (occurrence: None)
  Receive Date: 20070403
  Receipt Date: 20070330
  Transmission Date: 20071010
  Serious: Yes (Other)
  Sender: FDA-Public Use
  Company Number: 2006UW10949

PATIENT
  Sex: Male
  Weight: 125 kg

DRUGS (7)
  1. SEROQUEL [Suspect]
     Route: 048
  2. ZYPREXA [Suspect]
  3. HALDOL [Concomitant]
  4. RISPERDAL [Concomitant]
  5. ZOLOFT [Concomitant]
  6. WELLBRUTAN [Concomitant]
  7. PROZAC [Concomitant]

REACTIONS (2)
  - PANCREATITIS [None]
  - TARDIVE DYSKINESIA [None]
